FAERS Safety Report 15689983 (Version 1)
Quarter: 2018Q4

REPORT INFORMATION
  Report Type: Spontaneous
  Country: US (occurrence: US)
  Receive Date: 20181126
  Receipt Date: 20181126
  Transmission Date: 20190205
  Serious: Yes (Hospitalization, Disabling, Other)
  Sender: FDA-Public Use
  Company Number: None

PATIENT
  Age: 61 Year
  Sex: Female
  Weight: 98.1 kg

DRUGS (1)
  1. GADOLINIUM-BASED CONTRAST AGENT (GADOLINIUM) UNKNOWN [Suspect]
     Active Substance: GADOLINIUM
     Indication: MYELITIS TRANSVERSE
     Dates: start: 20080426, end: 20160413

REACTIONS (3)
  - Impaired quality of life [None]
  - Contrast media toxicity [None]
  - Ill-defined disorder [None]

NARRATIVE: CASE EVENT DATE: 20080426
